FAERS Safety Report 5731382-6 (Version None)
Quarter: 2008Q2

REPORT INFORMATION
  Report Type: 
  Country: None (occurrence: None)
  Receive Date: 20080508
  Receipt Date: 20080430
  Transmission Date: 20081010
  Serious: Yes (Hospitalization)
  Sender: FDA-Public Use
  Company Number: US-JNJFOC-20080203339

PATIENT
  Sex: Female
  Weight: 62.6 kg

DRUGS (5)
  1. FENTANYL TRANSDERMAL SYSTEM [Suspect]
     Indication: PAIN
     Route: 062
  2. FENTANYL TRANSDERMAL SYSTEM [Suspect]
     Indication: BRAIN NEOPLASM
     Route: 062
  3. MORPHINE [Concomitant]
     Indication: BRAIN NEOPLASM
     Dosage: EVERY 6 HOURS AS NEEDED
     Route: 030
  4. LISINOPRIL AND HYDROCHLOROTHIAZIDE [Concomitant]
     Indication: BLOOD PRESSURE
     Dosage: 20-12.5 MG TABLET ONCE A DAY
     Route: 048
  5. PHENERGAN [Concomitant]
     Indication: VOMITING
     Route: 048

REACTIONS (7)
  - BLOOD PRESSURE INCREASED [None]
  - FALL [None]
  - FEELING ABNORMAL [None]
  - HEART RATE INCREASED [None]
  - THINKING ABNORMAL [None]
  - TREATMENT NONCOMPLIANCE [None]
  - TREMOR [None]
